FAERS Safety Report 23130526 (Version 1)
Quarter: 2023Q4

REPORT INFORMATION
  Report Type: Spontaneous
  Country: FR (occurrence: FR)
  Receive Date: 20231031
  Receipt Date: 20231031
  Transmission Date: 20240110
  Serious: Yes (Hospitalization)
  Sender: FDA-Public Use
  Company Number: FR-SUN PHARMACEUTICAL INDUSTRIES LTD-2023RR-415379

PATIENT
  Age: 57 Year
  Sex: Female
  Weight: 90 kg

DRUGS (8)
  1. AMLODIPINE [Suspect]
     Active Substance: AMLODIPINE BESYLATE
     Indication: Product used for unknown indication
     Dosage: 10 MILLIGRAM, DAILY
     Route: 048
  2. VENLAFAXINE [Suspect]
     Active Substance: VENLAFAXINE HYDROCHLORIDE
     Indication: Product used for unknown indication
     Dosage: 300 MILLIGRAM, DAILY
     Route: 048
  3. PREDNISONE [Suspect]
     Active Substance: PREDNISONE
     Indication: Product used for unknown indication
     Dosage: 80 MILLIGRAM, DAILY
     Route: 048
     Dates: start: 20230307, end: 20230326
  4. VALSARTAN [Suspect]
     Active Substance: VALSARTAN
     Indication: Product used for unknown indication
     Dosage: 160 MILLIGRAM, DAILY
     Route: 048
  5. ZOPICLONE [Suspect]
     Active Substance: ZOPICLONE
     Indication: Product used for unknown indication
     Dosage: 3.5 MILLIGRAM, DAILY
     Route: 048
  6. MIANSERIN [Suspect]
     Active Substance: MIANSERIN
     Indication: Product used for unknown indication
     Dosage: 90 MILLIGRAM, DAILY
     Route: 048
  7. LAMOTRIGINE [Suspect]
     Active Substance: LAMOTRIGINE
     Indication: Product used for unknown indication
     Dosage: 400 MILLIGRAM, DAILY
     Route: 048
  8. ENTYVIO [Suspect]
     Active Substance: VEDOLIZUMAB
     Indication: Colitis ulcerative
     Dosage: UNK
     Route: 040
     Dates: start: 20230315, end: 20230315

REACTIONS (2)
  - Basilar artery occlusion [Not Recovered/Not Resolved]
  - Vertebral artery occlusion [Not Recovered/Not Resolved]

NARRATIVE: CASE EVENT DATE: 20230326
